FAERS Safety Report 4798242-9 (Version None)
Quarter: 2005Q4

REPORT INFORMATION
  Report Type: 
  Country: None (occurrence: None)
  Receive Date: 20051007
  Receipt Date: 20051007
  Transmission Date: 20060501
  Serious: Yes (Death)
  Sender: FDA-Public Use
  Company Number: None

PATIENT
  Sex: Female
  Weight: 83.6 kg

DRUGS (10)
  1. IMMUNE CELLS HUMAN [Suspect]
     Indication: BLOOD DISORDER
     Dosage: 5X 10^7 ONCE IV
     Route: 042
  2. IMMUNE CELLS HUMAN [Suspect]
     Dosage: 3X 10^7 ONCE IV
     Route: 042
  3. AMICAR [Concomitant]
  4. ATIVAN [Concomitant]
  5. MAGNESIUM [Concomitant]
  6. MEPRON [Concomitant]
  7. NEXIUM [Concomitant]
  8. VALCYTE [Concomitant]
  9. TRAZODONE HCL [Concomitant]
  10. FLAGYL [Concomitant]

REACTIONS (1)
  - NO ADVERSE EFFECT [None]
